FAERS Safety Report 7674038-5 (Version None)
Quarter: 2011Q3

REPORT INFORMATION
  Report Type: 
  Country: None (occurrence: None)
  Receive Date: 20110808
  Receipt Date: 20110722
  Transmission Date: 20111222
  Serious: Yes (Life-Threatening, Hospitalization, Other)
  Sender: FDA-Public Use
  Company Number: AUR-APL-2011-04465

PATIENT
  Age: 36 Year
  Sex: Female

DRUGS (4)
  1. CITALOPRAM HYDROBROMIDE [Suspect]
     Indication: DEPRESSION
  2. ULTRAM [Suspect]
     Indication: PRODUCT USED FOR UNKNOWN INDICATION
  3. BENZODIAZEPINES NOS (BENZODIAZEPINE DERIVATIVES) [Suspect]
     Indication: PRODUCT USED FOR UNKNOWN INDICATION
  4. IBUPROFEN [Suspect]
     Indication: PRODUCT USED FOR UNKNOWN INDICATION

REACTIONS (9)
  - DRUG SCREEN POSITIVE [None]
  - DEPRESSION [None]
  - BRADYCARDIA [None]
  - CONDITION AGGRAVATED [None]
  - MULTIPLE DRUG OVERDOSE [None]
  - ELECTROCARDIOGRAM QT PROLONGED [None]
  - BLOOD GLUCOSE INCREASED [None]
  - HYPOXIA [None]
  - UNRESPONSIVE TO STIMULI [None]
